FAERS Safety Report 4678388-6 (Version None)
Quarter: 2005Q2

REPORT INFORMATION
  Report Type: 
  Country: None (occurrence: None)
  Receive Date: 20050531
  Receipt Date: 20050531
  Transmission Date: 20051028
  Serious: No
  Sender: FDA-Public Use
  Company Number: None

PATIENT
  Age: 60 Year
  Sex: Female

DRUGS (3)
  1. VISIPAQUE 320 [Suspect]
     Indication: SCAN WITH CONTRAST
     Dosage: 320 STAT INTRAVENOU
     Route: 042
     Dates: start: 20050412, end: 20050412
  2. PLAVIX [Concomitant]
  3. ASPIRIN [Concomitant]

REACTIONS (2)
  - PRURITUS [None]
  - URTICARIA [None]
